FAERS Safety Report 22223010 (Version 2)
Quarter: 2023Q2

REPORT INFORMATION
  Report Type: Report from Study
  Country: US (occurrence: US)
  Receive Date: 20230418
  Receipt Date: 20230419
  Transmission Date: 20230722
  Serious: Yes (Hospitalization, Other)
  Sender: FDA-Public Use
  Company Number: US-ABBVIE-4732163

PATIENT
  Sex: Male
  Weight: 85 kg

DRUGS (3)
  1. CREON [Suspect]
     Active Substance: PANCRELIPASE AMYLASE\PANCRELIPASE LIPASE\PANCRELIPASE PROTEASE
     Indication: Postoperative care
     Dosage: FORM STRENGTH: 24000 UNIT??FREQUENCY TEXT: 2 PILLS 3 TIMES A DAY WITH FOOD
     Route: 048
     Dates: start: 2020
  2. ASPIRIN [Concomitant]
     Active Substance: ASPIRIN
     Indication: Anticoagulant therapy
  3. DAPTOMYCIN [Concomitant]
     Active Substance: DAPTOMYCIN
     Indication: Liver abscess

REACTIONS (4)
  - Scar [Not Recovered/Not Resolved]
  - Liver abscess [Not Recovered/Not Resolved]
  - Haemorrhage [Not Recovered/Not Resolved]
  - Post procedural complication [Not Recovered/Not Resolved]

NARRATIVE: CASE EVENT DATE: 20200101
